FAERS Safety Report 16775324 (Version 4)
Quarter: 2019Q4

REPORT INFORMATION
  Report Type: Report from Study
  Country: CO (occurrence: CO)
  Receive Date: 20190905
  Receipt Date: 20191015
  Transmission Date: 20200122
  Serious: Yes (Other)
  Sender: FDA-Public Use
  Company Number: PHHY2019CO203945

PATIENT
  Sex: Female
  Weight: 60 kg

DRUGS (5)
  1. TAFINLAR [Suspect]
     Active Substance: DABRAFENIB MESYLATE
     Indication: METASTATIC MALIGNANT MELANOMA
     Dosage: 300 MG, QD
     Route: 048
     Dates: start: 20190726
  2. TRAMADOL. [Concomitant]
     Active Substance: TRAMADOL
     Indication: PAIN IN EXTREMITY
     Dosage: UNK UNK, PRN
     Route: 065
  3. MEKINIST [Suspect]
     Active Substance: TRAMETINIB DIMETHYL SULFOXIDE
     Indication: METASTATIC MALIGNANT MELANOMA
     Dosage: 2 MG, QD
     Route: 048
     Dates: start: 20190726
  4. MEKINIST [Suspect]
     Active Substance: TRAMETINIB DIMETHYL SULFOXIDE
     Dosage: 1.5 MG, QD
     Route: 048
  5. TAFINLAR [Suspect]
     Active Substance: DABRAFENIB MESYLATE
     Dosage: 200 MG, QD
     Route: 048

REACTIONS (11)
  - Oral pain [Recovered/Resolved]
  - Pigmentation disorder [Recovering/Resolving]
  - Skin laceration [Unknown]
  - Dry skin [Unknown]
  - Hypothermia [Recovered/Resolved]
  - Skin disorder [Unknown]
  - Myalgia [Recovered/Resolved]
  - Inappropriate schedule of product administration [Unknown]
  - Apathy [Recovered/Resolved]
  - Lip dry [Unknown]
  - Petechiae [Recovering/Resolving]
